FAERS Safety Report 5174297-7 (Version None)
Quarter: 2006Q4

REPORT INFORMATION
  Report Type: 
  Country: None (occurrence: None)
  Receive Date: 20061214
  Receipt Date: 20060307
  Transmission Date: 20070319
  Serious: Yes (Death, Hospitalization, Other)
  Sender: FDA-Public Use
  Company Number: US-ELI_LILLY_AND_COMPANY-US200603002490

PATIENT
  Age: 70 Year
  Sex: Female
  Weight: 77.097 kg

DRUGS (1)
  1. ZYPREXA [Suspect]
     Dosage: UNK, UNKNOWN
     Dates: start: 20030101, end: 20040101

REACTIONS (4)
  - DEATH [None]
  - DIABETES MELLITUS [None]
  - DIABETIC COMA [None]
  - DIABETIC COMPLICATION [None]
